FAERS Safety Report 7216362-6 (Version None)
Quarter: 2011Q1

REPORT INFORMATION
  Report Type: 
  Country: None (occurrence: None)
  Receive Date: 20110107
  Receipt Date: 20101228
  Transmission Date: 20110831
  Serious: Yes (Hospitalization)
  Sender: FDA-Public Use
  Company Number: DK-GENENTECH-303909

PATIENT
  Sex: Male
  Weight: 64 kg

DRUGS (32)
  1. ENALAPRIL MALEATE AND HYDROCHLOROTHIAZIDE [Concomitant]
     Indication: HYPERTENSION
     Dosage: UNK
     Route: 048
     Dates: start: 20100418
  2. SULFAMETOXAZOL [Concomitant]
     Indication: PRODUCT USED FOR UNKNOWN INDICATION
     Dosage: UNK
     Dates: start: 20100524
  3. AMOXICILLIN [Concomitant]
     Indication: PRODUCT USED FOR UNKNOWN INDICATION
     Dosage: UNK
     Dates: start: 20100624
  4. PREDNISONE [Suspect]
     Indication: DIFFUSE LARGE B-CELL LYMPHOMA
     Dosage: 100 MG, UNK
     Route: 048
     Dates: start: 20100610
  5. NEUPOGEN [Suspect]
     Indication: DIFFUSE LARGE B-CELL LYMPHOMA
     Dosage: 6 MG, UNK
     Dates: start: 20100501
  6. CIPROFLOXACIN [Concomitant]
     Indication: PRODUCT USED FOR UNKNOWN INDICATION
     Dosage: UNK
     Dates: start: 20100624
  7. RITUXIMAB [Suspect]
     Dosage: 700 MG, UNK
     Route: 042
     Dates: start: 20100610
  8. DOXORUBICIN HCL [Suspect]
     Indication: DIFFUSE LARGE B-CELL LYMPHOMA
     Dosage: 93 MG, UNK
     Route: 042
     Dates: start: 20100610
  9. PANTOPRAZOLE [Concomitant]
     Indication: PRODUCT USED FOR UNKNOWN INDICATION
     Dosage: UNK
     Route: 048
     Dates: start: 20100429
  10. SIMVASTATIN [Concomitant]
     Indication: HYPERCHOLESTEROLAEMIA
     Dosage: UNK
     Route: 048
     Dates: start: 20100419
  11. VANCOMYCIN [Concomitant]
     Indication: INFECTION
     Dosage: UNK
     Route: 048
     Dates: start: 20100424
  12. RITUXIMAB [Suspect]
     Dosage: 700 MG, UNK
     Route: 042
     Dates: start: 20100624
  13. DOXORUBICIN HCL [Suspect]
     Dosage: 87 MG, UNK
     Route: 042
     Dates: start: 20100428
  14. DOXORUBICIN HCL [Suspect]
     Dosage: 87 MG, UNK
     Route: 042
     Dates: start: 20100625
  15. VINCRISTINE [Suspect]
     Dosage: 2 MG, UNK
     Route: 042
     Dates: start: 20100625
  16. ALLOPURINOL [Concomitant]
     Indication: PROPHYLAXIS
     Dosage: UNK
     Route: 048
     Dates: start: 20100423
  17. ONDANSETRON [Concomitant]
     Indication: PROPHYLAXIS
     Dosage: UNK
     Route: 048
     Dates: start: 20100428
  18. FLUCONAZOLE [Concomitant]
     Indication: FUNGAL INFECTION
     Dosage: 200 MG, UNK
     Dates: start: 20100505
  19. RITUXIMAB [Suspect]
     Indication: DIFFUSE LARGE B-CELL LYMPHOMA
     Dosage: 700 MG, UNK
     Route: 042
     Dates: start: 20100428
  20. VINCRISTINE [Suspect]
     Dosage: 2 MG, UNK
     Route: 042
     Dates: start: 20100428
  21. NEUPOGEN [Suspect]
     Dosage: 6 MG, UNK
     Dates: start: 20100629
  22. METOCLOPRAMID [Concomitant]
     Indication: PROPHYLAXIS
     Dosage: UNK
     Route: 048
     Dates: start: 20100428
  23. CYCLOPHOSPHAMIDE [Suspect]
     Dosage: 1300 MG, UNK
     Route: 042
     Dates: start: 20100428
  24. CYCLOPHOSPHAMIDE [Suspect]
     Dosage: 1300 MG, UNK
     Route: 042
     Dates: start: 20100625
  25. VINCRISTINE [Suspect]
     Indication: DIFFUSE LARGE B-CELL LYMPHOMA
     Dosage: 2 MG, UNK
     Route: 042
     Dates: start: 20100610
  26. NEUPOGEN [Suspect]
     Dosage: 6 MG, UNK
     Dates: start: 20100613
  27. CYCLOPHOSPHAMIDE [Suspect]
     Indication: DIFFUSE LARGE B-CELL LYMPHOMA
     Dosage: 1400 MG, UNK
     Route: 042
     Dates: start: 20100610
  28. PREDNISONE [Suspect]
     Dosage: 100 MG, UNK
     Route: 048
     Dates: start: 20100624
  29. PREDNISONE [Suspect]
     Dosage: 100 MG, UNK
     Route: 048
     Dates: start: 20100428
  30. ACYCLOVIR [Concomitant]
     Indication: PROPHYLAXIS
     Dosage: UNK
     Route: 048
     Dates: start: 20100427
  31. METFORMIN HYDROCHLORIDE [Concomitant]
     Indication: DIABETES MELLITUS
     Dosage: UNK
     Route: 048
     Dates: start: 20100429
  32. THIAZIDES [Concomitant]
     Indication: OEDEMA
     Dosage: UNK
     Dates: start: 20100324

REACTIONS (4)
  - DIARRHOEA [None]
  - INFECTION [None]
  - DEHYDRATION [None]
  - HYPOKALAEMIA [None]
